FAERS Safety Report 5093596-0 (Version None)
Quarter: 2006Q3

REPORT INFORMATION
  Report Type: 
  Country: None (occurrence: None)
  Receive Date: 20060829
  Receipt Date: 20060823
  Transmission Date: 20061208
  Serious: Yes (Life-Threatening, Hospitalization, Other)
  Sender: FDA-Public Use
  Company Number: HQWYE223408MAY06

PATIENT
  Age: 33 Year
  Sex: Female
  Weight: 73.3 kg

DRUGS (13)
  1. RAPAMUNE [Suspect]
     Indication: PROPHYLAXIS AGAINST TRANSPLANT REJECTION
     Dosage: 10 MG 1X PER 1 DAY, ORAL
     Route: 048
     Dates: start: 20051101, end: 20060510
  2. CELLCEPT [Concomitant]
  3. PREDNISONE TAB [Concomitant]
  4. SEPTRA DS [Concomitant]
  5. NORVASC [Concomitant]
  6. COUMADIN [Concomitant]
  7. VALCYTE [Concomitant]
  8. LABETALOL HCL [Concomitant]
  9. LASIX [Concomitant]
  10. ZANTAC [Concomitant]
  11. LANTUS [Concomitant]
  12. INSULIN [Concomitant]
  13. TUMS (CALCIUM CARBONATE/MAGNESIUM CARBONATE/MAGNESIUM TRISILICATE) [Concomitant]

REACTIONS (13)
  - BLOOD GLUCOSE INCREASED [None]
  - DRUG INEFFECTIVE [None]
  - DRUG TOXICITY [None]
  - ELECTROMECHANICAL DISSOCIATION [None]
  - GENERAL PHYSICAL HEALTH DETERIORATION [None]
  - HAEMOLYTIC URAEMIC SYNDROME [None]
  - KIDNEY TRANSPLANT REJECTION [None]
  - LUNG ABSCESS [None]
  - LUNG INFILTRATION [None]
  - PERICARDITIS [None]
  - RESPIRATORY FAILURE [None]
  - SEPSIS [None]
  - ZYGOMYCOSIS [None]
